FAERS Safety Report 4286317-2 (Version None)
Quarter: 2004Q1

REPORT INFORMATION
  Report Type: 
  Country: None (occurrence: None)
  Receive Date: 20040121
  Receipt Date: 20030227
  Transmission Date: 20041129
  Serious: Yes (Death)
  Sender: FDA-Public Use
  Company Number: A03200300414

PATIENT
  Age: 81 Year
  Sex: Male
  Weight: 56.6996 kg

DRUGS (4)
  1. PLAVIX [Suspect]
     Indication: CEREBROVASCULAR ACCIDENT
     Dosage: NI UNK - ORAL
     Route: 048
  2. ACETYLSALICYLIC ACID SRT [Concomitant]
  3. DILTIAZEM HYDROCHLORIDE [Concomitant]
  4. ANTACID TAB [Concomitant]

REACTIONS (1)
  - HAEMORRHAGE [None]
